FAERS Safety Report 7771528-1 (Version None)
Quarter: 2011Q3

REPORT INFORMATION
  Report Type: 
  Country: None (occurrence: None)
  Receive Date: 20110922
  Receipt Date: 20100517
  Transmission Date: 20111222
  Serious: No
  Sender: FDA-Public Use
  Company Number: US-ASTRAZENECA-2009UW21610

PATIENT
  Age: 15345 Day
  Sex: Female

DRUGS (8)
  1. KLONOPIN [Concomitant]
     Dates: start: 20040825
  2. SEROQUEL [Suspect]
     Indication: DEPRESSION
     Route: 048
     Dates: start: 20040713, end: 20050101
  3. ZYPREXA [Concomitant]
     Indication: BIPOLAR DISORDER
     Dates: start: 19970101, end: 20040101
  4. ATIVAN [Concomitant]
     Dates: start: 20040825
  5. SEROQUEL [Suspect]
     Dosage: 25 MG TO 50 MG
     Route: 048
     Dates: start: 20040825
  6. SEROQUEL [Suspect]
     Dosage: 25 MG TO 50 MG
     Route: 048
     Dates: start: 20040825
  7. SEROQUEL [Suspect]
     Indication: BIPOLAR DISORDER
     Route: 048
     Dates: start: 20040713, end: 20050101
  8. PROZAC [Concomitant]
     Dates: start: 20040825

REACTIONS (4)
  - FATIGUE [None]
  - HYPOAESTHESIA [None]
  - TYPE 2 DIABETES MELLITUS [None]
  - WEIGHT INCREASED [None]
